FAERS Safety Report 17087847 (Version 2)
Quarter: 2019Q4

REPORT INFORMATION
  Report Type: Spontaneous
  Country: JP (occurrence: JP)
  Receive Date: 20191128
  Receipt Date: 20191204
  Transmission Date: 20200122
  Serious: Yes (Other)
  Sender: FDA-Public Use
  Company Number: JP-PFIZER INC-2019510913

PATIENT
  Age: 75 Year
  Sex: Male

DRUGS (2)
  1. ANCARON [Suspect]
     Active Substance: AMIODARONE HYDROCHLORIDE
     Indication: ATRIAL FLUTTER
     Dosage: 200 MG, UNK
     Route: 048
  2. ANCARON [Suspect]
     Active Substance: AMIODARONE HYDROCHLORIDE
     Indication: TACHYCARDIA

REACTIONS (6)
  - Blood thyroid stimulating hormone increased [Recovering/Resolving]
  - Thyroxine free decreased [Recovered/Resolved]
  - Blood pressure decreased [Recovered/Resolved]
  - Hypothyroidism [Unknown]
  - Ultrafiltration failure [Unknown]
  - Tri-iodothyronine free decreased [Recovering/Resolving]
